FAERS Safety Report 7251697-2 (Version None)
Quarter: 2011Q1

REPORT INFORMATION
  Report Type: 
  Country: None (occurrence: None)
  Receive Date: 20110128
  Receipt Date: 20110118
  Transmission Date: 20110831
  Serious: Yes (Other)
  Sender: FDA-Public Use
  Company Number: GB-ELI_LILLY_AND_COMPANY-GB201101004002

PATIENT
  Age: 46 Year
  Sex: Female

DRUGS (4)
  1. ABILIFY [Concomitant]
     Dosage: 5 MG, DAILY (1/D)
     Dates: start: 20100901
  2. OLANZAPINE [Suspect]
     Dosage: 20 MG, UNK
  3. OLANZAPINE [Suspect]
     Dosage: 10 MG, DAILY (1/D)
  4. ABILIFY [Concomitant]
     Dosage: 20 MG, DAILY (1/D)

REACTIONS (2)
  - PSYCHOTIC DISORDER [None]
  - SLEEP DISORDER [None]
